FAERS Safety Report 10219986 (Version 1)
Quarter: 2014Q2

REPORT INFORMATION
  Report Type: Spontaneous
  Country: GB (occurrence: GB)
  Receive Date: 20140605
  Receipt Date: 20140605
  Transmission Date: 20141212
  Serious: Yes (Other)
  Sender: FDA-Public Use
  Company Number: PHHY2014GB065966

PATIENT
  Age: 58 Year
  Sex: Female

DRUGS (5)
  1. DOMPERIDONE [Suspect]
     Indication: ANTIEMETIC SUPPORTIVE CARE
     Dosage: 10 MG, TID
     Route: 048
  2. EPIRUBICIN [Suspect]
     Indication: BREAST CANCER
     Route: 065
  3. 5-FLUOROURACIL [Suspect]
     Indication: BREAST CANCER
     Route: 065
  4. CYCLOPHOSPHAMIDE [Suspect]
     Indication: BREAST CANCER
     Route: 065
  5. DEXAMETHASONE [Suspect]
     Indication: ANTIEMETIC SUPPORTIVE CARE
     Route: 065

REACTIONS (3)
  - Urinary retention [Recovered/Resolved]
  - Peripheral swelling [Recovered/Resolved]
  - Peripheral swelling [Recovered/Resolved]
